FAERS Safety Report 4585778-9 (Version None)
Quarter: 2005Q1

REPORT INFORMATION
  Report Type: 
  Country: None (occurrence: None)
  Receive Date: 20050128
  Receipt Date: 20050128
  Transmission Date: 20050727
  Serious: Yes (Hospitalization, Other)
  Sender: FDA-Public Use
  Company Number: None

PATIENT
  Age: 57 Year
  Sex: Male
  Weight: 137.4 kg

DRUGS (12)
  1. LISINOPRIL AND HYDROCHLOROTHIAZIDE [Suspect]
     Indication: HYPERTENSION
     Dosage: 10 MG/ 12.5 MG DAILY
     Dates: start: 20040701, end: 20041008
  2. LITHIUM [Suspect]
     Indication: POST-TRAUMATIC STRESS DISORDER
     Dosage: 450 MG Q AM AND 900 MG Q PM [CHRONIC]
  3. METFORMIN HCL [Concomitant]
  4. FELODIPINE [Concomitant]
  5. TRAZODONE [Concomitant]
  6. CLONAZEPAM [Concomitant]
  7. LEVOBUNOLOL HYDROCHLORIDE [Concomitant]
  8. PAXIL [Concomitant]
  9. TRAVOPROST [Concomitant]
  10. TRAZADONE [Concomitant]
  11. ZOLPIDEM TARTRATE [Concomitant]
  12. M.V.I. [Concomitant]

REACTIONS (7)
  - CONFUSIONAL STATE [None]
  - DIALYSIS [None]
  - DIARRHOEA [None]
  - FLUID OVERLOAD [None]
  - PULMONARY OEDEMA [None]
  - RENAL FAILURE [None]
  - THERAPEUTIC AGENT TOXICITY [None]
